FAERS Safety Report 10204399 (Version 1)
Quarter: 2014Q2

REPORT INFORMATION
  Report Type: Spontaneous
  Country: US (occurrence: US)
  Receive Date: 20140529
  Receipt Date: 20140529
  Transmission Date: 20141212
  Serious: No
  Sender: FDA-Public Use
  Company Number: US-SANOFI-AVENTIS-2013SA059387

PATIENT
  Age: 80 Year
  Sex: Female

DRUGS (2)
  1. SOLOSTAR [Suspect]
     Dosage: TAKEN FROM -A COUPLE WEEKS AGO
  2. LANTUS SOLOSTAR [Suspect]
     Dosage: TAKEN FROM:A COUPLE WEEKS AGO DOSE:40 UNIT(S)
     Route: 065

REACTIONS (3)
  - Pain in extremity [Unknown]
  - Injection site pain [Unknown]
  - Underdose [Unknown]
